FAERS Safety Report 11718732 (Version 1)
Quarter: 2015Q4

REPORT INFORMATION
  Report Type: Spontaneous
  Country: US (occurrence: US)
  Receive Date: 20151110
  Receipt Date: 20151110
  Transmission Date: 20160304
  Serious: No
  Sender: FDA-Public Use
  Company Number: US-BAYER-2015-463905

PATIENT
  Age: 73 Year
  Sex: Male
  Weight: 68.27 kg

DRUGS (1)
  1. OXYTROL FOR WOMEN [Suspect]
     Active Substance: OXYBUTYNIN
     Indication: URINARY INCONTINENCE
     Dosage: 1 DF, PRN
     Route: 061

REACTIONS (2)
  - Off label use [None]
  - Product adhesion issue [None]

NARRATIVE: CASE EVENT DATE: 201510
